FAERS Safety Report 6156321-8 (Version None)
Quarter: 2009Q2

REPORT INFORMATION
  Report Type: 
  Country: None (occurrence: None)
  Receive Date: 20090413
  Receipt Date: 20090325
  Transmission Date: 20091009
  Serious: Yes (Death)
  Sender: FDA-Public Use
  Company Number: OPER20090076

PATIENT
  Age: 39 Year
  Sex: Male

DRUGS (5)
  1. OPANA ER [Suspect]
     Indication: BACK PAIN
     Dosage: 60 MG, BID, PER ORAL
     Route: 048
     Dates: start: 20071201, end: 20080801
  2. VICODIN [Suspect]
     Indication: BREAKTHROUGH PAIN
     Dosage: 10 MG, 4 TIMES DAILY, PER ORAL
     Route: 048
     Dates: end: 20080801
  3. NEURONTIN [Concomitant]
  4. BUPROPION HCL [Concomitant]
  5. CITALOPRAM [Concomitant]

REACTIONS (1)
  - ACCIDENTAL OVERDOSE [None]
